FAERS Safety Report 15754636 (Version 1)
Quarter: 2018Q4

REPORT INFORMATION
  Report Type: Spontaneous
  Country: NL (occurrence: NL)
  Receive Date: 20181224
  Receipt Date: 20181224
  Transmission Date: 20190205
  Serious: Yes (Other)
  Sender: FDA-Public Use
  Company Number: NL-TEVA-2018-NL-989900

PATIENT
  Age: 71 Year
  Sex: Male
  Weight: 90 kg

DRUGS (7)
  1. OMEPRAZOL 10 [Concomitant]
     Route: 065
  2. DUSPATAL 200 [Concomitant]
     Route: 065
  3. CLINDAMYCINE CAPSULE, 300 MG (MILLIGRAM) [Suspect]
     Active Substance: CLINDAMYCIN
     Indication: INFECTION
     Dosage: 300 MILLIGRAM DAILY; 1 DAY 2 FURTHER 1 WEEK 1 PD
     Route: 065
     Dates: start: 20180804
  4. XARELTO [Concomitant]
     Active Substance: RIVAROXABAN
     Route: 065
  5. CLINDAMYCINE CAPSULE, 300 MG (MILLIGRAM) [Suspect]
     Active Substance: CLINDAMYCIN
     Dosage: 600 MILLIGRAM 1 DAY 2 FURTHER 1 WEEK 1 PD
     Route: 065
     Dates: start: 20180803
  6. PERINDOPRIL 2,5 [Concomitant]
     Route: 065
  7. SOTALOL 40 [Concomitant]
     Route: 065

REACTIONS (6)
  - Dermatitis bullous [Recovered/Resolved]
  - Gastrointestinal disorder [Not Recovered/Not Resolved]
  - Dysphagia [Recovering/Resolving]
  - Tongue dry [Not Recovered/Not Resolved]
  - Dysgeusia [Not Recovered/Not Resolved]
  - Ear infection [Recovered/Resolved]

NARRATIVE: CASE EVENT DATE: 20180804
